FAERS Safety Report 9529605 (Version 2)
Quarter: 2014Q1

REPORT INFORMATION
  Report Type: Spontaneous
  Country: US (occurrence: None)
  Receive Date: 20130402
  Receipt Date: 20140304
  Transmission Date: 20141002
  Serious: Yes (Other)
  Sender: FDA-Public Use
  Company Number: RB-49770-2013

PATIENT
  Age: 57 Year
  Sex: Male

DRUGS (6)
  1. BUPRENORPHINE 8 MG (NONE) [Suspect]
     Indication: DRUG DEPENDENCE
     Route: 060
     Dates: start: 20100826
  2. OMEPRAZOLE [Concomitant]
  3. GABAPENTIN [Concomitant]
  4. ACYCLOVIR [Concomitant]
  5. CLONIDINE [Concomitant]
  6. CYCLOBENZAPRINE [Concomitant]

REACTIONS (3)
  - Dysphagia [None]
  - Oesophageal hypomotility [None]
  - Wrong technique in drug usage process [None]
